FAERS Safety Report 20968864 (Version 2)
Quarter: 2022Q2

REPORT INFORMATION
  Report Type: Spontaneous
  Country: US (occurrence: US)
  Receive Date: 20220616
  Receipt Date: 20220617
  Transmission Date: 20220721
  Serious: Yes (Other)
  Sender: FDA-Public Use
  Company Number: US-CELGENE-USA-20220206318

PATIENT
  Age: 74 Year
  Sex: Female
  Weight: 75.75 kg

DRUGS (3)
  1. REVLIMID [Suspect]
     Active Substance: LENALIDOMIDE
     Indication: Plasma cell myeloma
     Dosage: 10 MILLIGRAM
     Route: 048
     Dates: start: 20220214
  2. REVLIMID [Suspect]
     Active Substance: LENALIDOMIDE
     Dosage: TAKE 1 CAPSULE BY MOUTH WHOLE WITH WATER AT THE SAME TIME EACH DAY ON DAYS 1-21 OF EACH 28 DAY CYCLE
     Route: 048
     Dates: start: 20220209, end: 20220422
  3. REVLIMID [Suspect]
     Active Substance: LENALIDOMIDE
     Dosage: TAKE 1 CAPSULE BY MOUTH WHOLE WITH WATER AT THE SAME TIME EACH DAY ON DAYS 1-21 OF EACH 28 DAY CYCLE
     Route: 048
     Dates: start: 20220210

REACTIONS (4)
  - Rash [Unknown]
  - Nausea [Unknown]
  - Red blood cell count decreased [Unknown]
  - Pruritus [Unknown]

NARRATIVE: CASE EVENT DATE: 20220201
